FAERS Safety Report 5932441-5 (Version None)
Quarter: 2008Q4

REPORT INFORMATION
  Report Type: 
  Country: None (occurrence: None)
  Receive Date: 20081027
  Receipt Date: 20081027
  Transmission Date: 20090506
  Serious: Yes (Life-Threatening, Hospitalization)
  Sender: FDA-Public Use
  Company Number: None

PATIENT
  Age: 20 Year
  Sex: Female
  Weight: 60.782 kg

DRUGS (1)
  1. MIRENA [Suspect]
     Indication: CONTRACEPTION
     Dosage: 20 UG/DAY INTRA-UTERINE
     Route: 015
     Dates: start: 20070412, end: 20081020

REACTIONS (2)
  - IUD MIGRATION [None]
  - RUPTURED ECTOPIC PREGNANCY [None]
